FAERS Safety Report 5402347-9 (Version None)
Quarter: 2007Q3

REPORT INFORMATION
  Report Type: 
  Country: None (occurrence: None)
  Receive Date: 20070801
  Receipt Date: 20070720
  Transmission Date: 20080115
  Serious: Yes (Other)
  Sender: FDA-Public Use
  Company Number: US-ELI_LILLY_AND_COMPANY-US200707005542

PATIENT
  Age: 61 Year
  Sex: Male

DRUGS (4)
  1. GEMCITABINE HCL [Suspect]
     Indication: PANCREATIC CARCINOMA
     Dosage: UNK, UNK
  2. GEMCITABINE HCL [Suspect]
     Dosage: UNK, OTHER
  3. OXALIPLATIN [Concomitant]
     Indication: PANCREATIC CARCINOMA
  4. CAPECITABINE [Concomitant]
     Indication: PANCREATIC CARCINOMA

REACTIONS (1)
  - HEPATIC FIBROSIS [None]
